FAERS Safety Report 7860291-1 (Version None)
Quarter: 2011Q4

REPORT INFORMATION
  Report Type: 
  Country: None (occurrence: None)
  Receive Date: 20111027
  Receipt Date: 20111020
  Transmission Date: 20120403
  Serious: Yes (Death, Hospitalization)
  Sender: FDA-Public Use
  Company Number: JP-AMGEN-KDC438006

PATIENT
  Age: 72 Year
  Sex: Male
  Weight: 80 kg

DRUGS (23)
  1. FLUOROURACIL [Suspect]
     Indication: COLORECTAL CANCER
     Dosage: 500 MG, Q2WK
     Route: 040
     Dates: start: 20100817, end: 20110607
  2. ALOXI [Concomitant]
     Route: 042
  3. FAMOTIDINE [Concomitant]
     Route: 048
  4. FLUOROURACIL [Suspect]
     Dosage: 4000 MG, Q2WK
     Route: 041
     Dates: start: 20100817, end: 20110607
  5. FLUOROURACIL [Suspect]
     Dosage: 3000 MG, Q2WK
     Route: 041
     Dates: start: 20110621, end: 20110906
  6. DECADRON [Concomitant]
  7. PANITUMUMAB [Suspect]
     Indication: COLORECTAL CANCER
     Dosage: 6 MG/KG, Q2WK
     Route: 041
     Dates: start: 20100817, end: 20100831
  8. OXALIPLATIN [Suspect]
     Indication: COLORECTAL CANCER
     Dosage: 100 MG, Q2WK
     Route: 041
     Dates: start: 20100817, end: 20110607
  9. PANITUMUMAB [Suspect]
     Dosage: 4.8 MG/KG, Q2WK
     Route: 041
     Dates: start: 20100914, end: 20101214
  10. BIO THREE [Concomitant]
     Route: 048
  11. FLUOROURACIL [Suspect]
     Dosage: 500 MG, Q2WK
     Route: 040
     Dates: start: 20110621, end: 20110906
  12. LEVOLEUCOVORIN CALCIUM [Concomitant]
     Dosage: 250 MG, Q2WK
     Route: 041
     Dates: start: 20110621, end: 20110906
  13. PRIMPERAN TAB [Concomitant]
     Route: 048
  14. EMEND [Concomitant]
     Route: 048
  15. LISINOPRIL [Concomitant]
     Route: 048
  16. MUCOSTA [Concomitant]
     Route: 048
  17. CORTICOSTEROIDS [Concomitant]
     Indication: PROPHYLAXIS
     Route: 065
  18. CONIEL [Concomitant]
     Route: 048
  19. LIPITOR [Concomitant]
     Route: 048
  20. PANITUMUMAB [Suspect]
     Dosage: 4.8 MG/KG, Q2WK
     Route: 041
     Dates: start: 20100112
  21. LEVOLEUCOVORIN CALCIUM [Concomitant]
     Indication: COLORECTAL CANCER
     Dosage: 300 MG, Q2WK
     Route: 041
     Dates: start: 20100817, end: 20110607
  22. IRINOTECAN HCL [Concomitant]
     Indication: COLORECTAL CANCER
     Dosage: 160 MG, Q2WK
     Route: 041
     Dates: start: 20110621, end: 20110906
  23. PURSENNID [Concomitant]
     Route: 048

REACTIONS (5)
  - NEUTROPHIL COUNT DECREASED [None]
  - COLORECTAL CANCER [None]
  - PARONYCHIA [None]
  - DERMATITIS ACNEIFORM [None]
  - STOMATITIS [None]
